FAERS Safety Report 22531123 (Version 1)
Quarter: 2023Q2

REPORT INFORMATION
  Report Type: Spontaneous
  Country: US (occurrence: US)
  Receive Date: 20230607
  Receipt Date: 20230607
  Transmission Date: 20230721
  Serious: Yes (Death, Hospitalization, Other)
  Sender: FDA-Public Use
  Company Number: US-PFIZER INC-202300208973

PATIENT
  Age: 76 Year
  Sex: Male
  Weight: 90.72 kg

DRUGS (6)
  1. VYNDAMAX [Suspect]
     Active Substance: TAFAMIDIS
     Indication: Cardiac amyloidosis
     Dosage: 61 MG
     Dates: start: 2021, end: 202305
  2. SERTRALINE [Concomitant]
     Active Substance: SERTRALINE HYDROCHLORIDE
     Dosage: UNK
  3. TRAZODONE [Concomitant]
     Active Substance: TRAZODONE HYDROCHLORIDE
     Dosage: UNK
  4. RISPERIDONE [Concomitant]
     Active Substance: RISPERIDONE
     Dosage: UNK
  5. MORPHINE [Concomitant]
     Active Substance: MORPHINE
     Dosage: UNK
     Dates: start: 202305
  6. ATIVAN [Concomitant]
     Active Substance: LORAZEPAM
     Dosage: UNK
     Dates: start: 202305

REACTIONS (25)
  - Cardiac failure congestive [Fatal]
  - Respiratory failure [Fatal]
  - Acute coronary syndrome [Fatal]
  - Hypovolaemic shock [Fatal]
  - Gastrointestinal haemorrhage [Fatal]
  - Renal failure [Fatal]
  - Amyloidosis [Fatal]
  - Myocardial infarction [Unknown]
  - Pleural effusion [Unknown]
  - Pericardial effusion [Unknown]
  - Dehydration [Unknown]
  - Sepsis [Unknown]
  - Vascular dementia [Unknown]
  - Renal failure [Unknown]
  - Blood creatinine increased [Unknown]
  - Catheter placement [Unknown]
  - Haematochezia [Unknown]
  - Dyspnoea [Unknown]
  - Blood pressure decreased [Unknown]
  - COVID-19 [Unknown]
  - Anxiety [Unknown]
  - Asthenia [Unknown]
  - Dysstasia [Unknown]
  - Communication disorder [Unknown]
  - Weight decreased [Unknown]

NARRATIVE: CASE EVENT DATE: 20220601
